FAERS Safety Report 8582262-2 (Version None)
Quarter: 2012Q2

REPORT INFORMATION
  Report Type: 
  Country: None (occurrence: None)
  Receive Date: 20120423
  Receipt Date: 20100726
  Transmission Date: 20120825
  Serious: Yes (Other)
  Sender: FDA-Public Use
  Company Number: PHHY2010US40569

PATIENT
  Age: 67 Year
  Sex: Male
  Weight: 83.3 kg

DRUGS (23)
  1. OXYCODONE HCL [Concomitant]
  2. TRIAMTEREN-H (HYDROCHLOROTHIAZIDE, TRIAMTERENE) [Concomitant]
  3. THERAGRAN-M (MINERALS NOS, VITAMINS NOS) [Concomitant]
  4. LISINOPRIL [Concomitant]
  5. FISH OIL (FISH OIL) [Concomitant]
  6. NASAL SALINE (SODIUM CHLORIDE) [Concomitant]
  7. ASTEPRO [Concomitant]
  8. COREG [Concomitant]
  9. VITAMIN B12 AND FOLIC ACID (NO INGREDIENTS/SUBSTANCES) [Concomitant]
  10. GLUMETZA [Concomitant]
  11. BUPROPION HCL [Concomitant]
  12. DIGOXIN [Concomitant]
  13. CLARITIN [Concomitant]
  14. AVONEX [Concomitant]
  15. PROVIGIL [Concomitant]
  16. VIAGRA [Concomitant]
  17. EXJADE [Suspect]
     Indication: IRON OVERLOAD
     Dosage: 1500 MG DAILY, ORAL ; 1500 MG DAILY, ORAL
     Route: 048
     Dates: start: 20100617, end: 20100621
  18. EXJADE [Suspect]
     Indication: IRON OVERLOAD
     Dosage: 1500 MG DAILY, ORAL ; 1500 MG DAILY, ORAL
     Route: 048
     Dates: start: 20100621, end: 20100629
  19. ASCORBIC ACID [Concomitant]
  20. VITAMIN E [Concomitant]
  21. ALLOPURINOL [Concomitant]
  22. AVONEX [Concomitant]
  23. PRILOSEC [Concomitant]

REACTIONS (4)
  - BLOOD UREA INCREASED [None]
  - RENAL FAILURE [None]
  - LIVER FUNCTION TEST ABNORMAL [None]
  - BLOOD CREATININE INCREASED [None]
